FAERS Safety Report 21245363 (Version 1)
Quarter: 2022Q3

REPORT INFORMATION
  Report Type: Spontaneous
  Country: US (occurrence: US)
  Receive Date: 20220823
  Receipt Date: 20220823
  Transmission Date: 20221027
  Serious: Yes (Hospitalization)
  Sender: FDA-Public Use
  Company Number: US-UROGEN PHARMA LTD.-2022-UGN-000091

PATIENT

DRUGS (2)
  1. JELMYTO [Suspect]
     Active Substance: MITOMYCIN
     Indication: Transitional cell cancer of the renal pelvis and ureter
     Dosage: UNK ONE TIME PER WEEK (INSTILLATION)
     Dates: start: 20220802, end: 20220802
  2. JELMYTO [Suspect]
     Active Substance: MITOMYCIN
     Dosage: UNK ONE TIME PER WEEK (INSTILLATION)
     Dates: start: 20220809, end: 20220809

REACTIONS (1)
  - Adverse event [Unknown]

NARRATIVE: CASE EVENT DATE: 20220801
